FAERS Safety Report 23599247 (Version 1)
Quarter: 2024Q1

REPORT INFORMATION
  Report Type: Spontaneous
  Country: US (occurrence: US)
  Receive Date: 20240306
  Receipt Date: 20240306
  Transmission Date: 20240409
  Serious: Yes (Other)
  Sender: FDA-Public Use
  Company Number: US-STRIDES ARCOLAB LIMITED-2024SP000519

PATIENT
  Age: 28 Year
  Sex: Male

DRUGS (9)
  1. PREDNISOLONE [Suspect]
     Active Substance: PREDNISOLONE
     Indication: Pemphigus
     Dosage: 60 MILLIGRAM
     Route: 065
  2. PREDNISOLONE [Suspect]
     Active Substance: PREDNISOLONE
     Dosage: 10 MILLIGRAM EVERY 5  (GRADUALLY DECREASED)
     Route: 065
  3. TACROLIMUS [Suspect]
     Active Substance: TACROLIMUS
     Indication: Pemphigus
     Dosage: 0.1 PERCENT, BID, RECEIVED FOR 3 MONTHS
     Route: 061
  4. KETOCONAZOLE [Concomitant]
     Active Substance: KETOCONAZOLE
     Indication: Evidence based treatment
     Dosage: UNK
     Route: 061
  5. MICONAZOLE [Concomitant]
     Active Substance: MICONAZOLE
     Indication: Evidence based treatment
     Dosage: UNK
     Route: 061
  6. TERBINAFINE [Concomitant]
     Active Substance: TERBINAFINE
     Indication: Evidence based treatment
     Dosage: UNK
     Route: 065
  7. SODIUM SULFACETAMIDE [Concomitant]
     Active Substance: SULFACETAMIDE SODIUM
     Indication: Evidence based treatment
     Dosage: UNK
     Route: 065
  8. HYDROCORTISONE [Concomitant]
     Active Substance: HYDROCORTISONE
     Indication: Evidence based treatment
     Dosage: UNK
     Route: 061
  9. CLOBETASOL [Concomitant]
     Active Substance: CLOBETASOL
     Indication: Evidence based treatment
     Route: 061

REACTIONS (1)
  - Drug ineffective [Unknown]
